FAERS Safety Report 22249459 (Version 2)
Quarter: 2023Q2

REPORT INFORMATION
  Report Type: Spontaneous
  Country: AR (occurrence: AR)
  Receive Date: 20230425
  Receipt Date: 20230523
  Transmission Date: 20230722
  Serious: No
  Sender: FDA-Public Use
  Company Number: AR-PFIZER INC-PV202300069015

PATIENT
  Age: 51 Year
  Sex: Female

DRUGS (1)
  1. ENBREL [Suspect]
     Active Substance: ETANERCEPT
     Indication: Rheumatoid arthritis
     Dosage: 50 MG, WEEKLY
     Dates: start: 20220310, end: 20230225

REACTIONS (2)
  - Injection site pain [Recovered/Resolved]
  - Injection site discolouration [Recovered/Resolved]
